FAERS Safety Report 5520123-3 (Version None)
Quarter: 2007Q4

REPORT INFORMATION
  Report Type: 
  Country: None (occurrence: None)
  Receive Date: 20071116
  Receipt Date: 20071106
  Transmission Date: 20080405
  Serious: Yes (Hospitalization)
  Sender: FDA-Public Use
  Company Number: US-SHR-US-2007-029673

PATIENT
  Age: 62 Year
  Sex: Female
  Weight: 64.853 kg

DRUGS (9)
  1. BETASERON [Suspect]
     Indication: RELAPSING-REMITTING MULTIPLE SCLEROSIS
     Dosage: 8 MIU, EVERY 2D
     Route: 058
     Dates: start: 20000508, end: 20070621
  2. ATACAND [Concomitant]
     Dosage: 32/12.5 MG, 1X/DAY
  3. ATENOLOL [Concomitant]
     Dosage: 25 MG, 1X/DAY
  4. SIMVASTATIN [Concomitant]
     Dosage: 10 MG, 1X/DAY
  5. BACLOFEN [Concomitant]
     Dosage: 10 MG, 1X/DAY
  6. OXYBUTYNIN CHLORIDE [Concomitant]
     Dosage: 5 MG, 4X/DAY
  7. LYRICA [Concomitant]
     Dosage: 15 MG, 1X/DAY
  8. NAPROXIN [Concomitant]
     Dosage: 500 MG, 1X/DAY
  9. TYLENOL EXTRA-STRENGTH [Concomitant]
     Dosage: UNK, 2X/DAY

REACTIONS (2)
  - PNEUMONIA [None]
  - THROMBOSIS [None]
